FAERS Safety Report 8260021-8 (Version None)
Quarter: 2012Q2

REPORT INFORMATION
  Report Type: 
  Country: None (occurrence: None)
  Receive Date: 20120404
  Receipt Date: 20120328
  Transmission Date: 20120825
  Serious: Yes (Other)
  Sender: FDA-Public Use
  Company Number: US-PFIZER INC-2012080391

PATIENT
  Sex: Female

DRUGS (1)
  1. LYRICA [Suspect]
     Dosage: UNK

REACTIONS (6)
  - FIBROMYALGIA [None]
  - HYPERHIDROSIS [None]
  - JOINT INJURY [None]
  - INFLUENZA LIKE ILLNESS [None]
  - SKIN DISORDER [None]
  - FEELING ABNORMAL [None]
